FAERS Safety Report 19480796 (Version 1)
Quarter: 2021Q2

REPORT INFORMATION
  Report Type: Spontaneous
  Country: US (occurrence: US)
  Receive Date: 20210630
  Receipt Date: 20210630
  Transmission Date: 20210717
  Serious: Yes (Hospitalization)
  Sender: FDA-Public Use
  Company Number: US-GILEAD-2021-0538357

PATIENT
  Age: 75 Year
  Sex: Male

DRUGS (16)
  1. POLYETHYLENE GLYCOL 3350. [Concomitant]
     Active Substance: POLYETHYLENE GLYCOL 3350
  2. VEKLURY [Interacting]
     Active Substance: REMDESIVIR
     Dosage: 100 MG, QD
     Route: 065
  3. TRAMADOL. [Interacting]
     Active Substance: TRAMADOL
     Dosage: 50 MG, QID
     Route: 065
  4. VEKLURY [Suspect]
     Active Substance: REMDESIVIR
     Indication: COVID-19 PNEUMONIA
     Dosage: 200 MG, QD DAY 1
     Route: 065
  5. BACLOFEN. [Concomitant]
     Active Substance: BACLOFEN
  6. PRAVASTATIN. [Concomitant]
     Active Substance: PRAVASTATIN
  7. GABAPENTIN. [Concomitant]
     Active Substance: GABAPENTIN
  8. OMEPRAZOLE. [Concomitant]
     Active Substance: OMEPRAZOLE
  9. VITAMIN E NOS [Concomitant]
     Active Substance: .ALPHA.-TOCOPHEROL
  10. TRAMADOL. [Interacting]
     Active Substance: TRAMADOL
     Dosage: 100 MG
     Route: 065
  11. ASPIRIN CUPAL [ACETYLSALICYLIC ACID] [Concomitant]
     Active Substance: ASPIRIN
  12. LEVOTHYROXINE. [Concomitant]
     Active Substance: LEVOTHYROXINE
  13. RANITIDINE. [Concomitant]
     Active Substance: RANITIDINE
  14. VITAMIN C [Concomitant]
     Active Substance: ASCORBIC ACID
  15. TRAMADOL. [Interacting]
     Active Substance: TRAMADOL
     Indication: PAIN
     Dosage: 50 MG, QID
     Route: 065
  16. VITAMIN D [VITAMIN D NOS] [Concomitant]
     Active Substance: VITAMIN D NOS

REACTIONS (2)
  - Drug interaction [Recovered/Resolved]
  - Pain [Recovered/Resolved]
